FAERS Safety Report 15540524 (Version 1)
Quarter: 2018Q4

REPORT INFORMATION
  Report Type: Spontaneous
  Country: KR (occurrence: KR)
  Receive Date: 20181023
  Receipt Date: 20181023
  Transmission Date: 20190205
  Serious: Yes (Other)
  Sender: FDA-Public Use
  Company Number: KR-ACCORD-073646

PATIENT
  Age: 70 Year
  Sex: Female

DRUGS (3)
  1. COLCHICINE. [Interacting]
     Active Substance: COLCHICINE
     Indication: HYPERURICAEMIA
  2. SPIRONOLACTONE. [Interacting]
     Active Substance: SPIRONOLACTONE
     Indication: GENERALISED OEDEMA
  3. FUROSEMIDE. [Suspect]
     Active Substance: FUROSEMIDE
     Indication: PLEURAL EFFUSION

REACTIONS (4)
  - Condition aggravated [Recovering/Resolving]
  - Peripheral sensory neuropathy [Unknown]
  - Drug interaction [Unknown]
  - Neuromyopathy [Recovering/Resolving]
